FAERS Safety Report 5076611-X (Version None)
Quarter: 2006Q3

REPORT INFORMATION
  Report Type: 
  Country: None (occurrence: None)
  Receive Date: 20060807
  Receipt Date: 20060724
  Transmission Date: 20061208
  Serious: Yes (Death, Other)
  Sender: FDA-Public Use
  Company Number: 2006078421

PATIENT
  Age: 75 Year
  Sex: Male

DRUGS (3)
  1. ZYVOX [Suspect]
     Indication: INFECTION
  2. PREDNISOLONE [Concomitant]
  3. CHEMOTHERAPY NOS (CHEMOTHERAPY NOS) [Concomitant]

REACTIONS (7)
  - BONE LESION [None]
  - IMMUNOSUPPRESSION [None]
  - MULTIPLE MYELOMA [None]
  - PLATELET COUNT DECREASED [None]
  - PNEUMONIA [None]
  - SEPSIS [None]
  - WHITE BLOOD CELL COUNT DECREASED [None]
